FAERS Safety Report 7595480 (Version 4)
Quarter: 2013Q4

REPORT INFORMATION
  Report Type: Spontaneous
  Country: US (occurrence: US)
  Receive Date: 20100920
  Receipt Date: 20131216
  Transmission Date: 20140711
  Serious: No
  Sender: FDA-Public Use
  Company Number: US-ASTRAZENECA-2010SE01984

PATIENT
  Age: 44 Year
  Sex: Female
  Weight: 70.3 kg

DRUGS (9)
  1. SEROQUEL XR [Suspect]
     Indication: BIPOLAR DISORDER
     Route: 048
  2. SEROQUEL XR [Suspect]
     Indication: BIPOLAR DISORDER
     Route: 048
  3. SEROQUEL XR [Suspect]
     Indication: BIPOLAR DISORDER
     Route: 048
     Dates: start: 2011, end: 20130310
  4. SEROQUEL XR [Suspect]
     Indication: BIPOLAR DISORDER
     Route: 048
  5. CLONIPIN [Concomitant]
  6. LORTAB [Concomitant]
     Dosage: AS REQUIRED
  7. SOMA [Concomitant]
     Dosage: AS REQUIRED
  8. ZANTAC [Concomitant]
  9. IMODIUM [Concomitant]

REACTIONS (10)
  - Anger [Not Recovered/Not Resolved]
  - Insomnia [Unknown]
  - Malaise [Unknown]
  - Nausea [Unknown]
  - Weight decreased [Not Recovered/Not Resolved]
  - Tremor [Unknown]
  - Tremor [Unknown]
  - Vomiting [Unknown]
  - Weight increased [Unknown]
  - Drug dose omission [Not Recovered/Not Resolved]
